FAERS Safety Report 6033135-0 (Version None)
Quarter: 2009Q1

REPORT INFORMATION
  Report Type: 
  Country: None (occurrence: None)
  Receive Date: 20090105
  Receipt Date: 20071220
  Transmission Date: 20090719
  Serious: Yes (Other)
  Sender: FDA-Public Use
  Company Number: US-000021

PATIENT
  Age: 65 Year
  Sex: Male
  Weight: 95 kg

DRUGS (4)
  1. MULTIHANCE [Suspect]
     Indication: BRAIN NEOPLASM
     Dosage: 20ML ONCE INTRAVENOUS (NOT OTHERWISE SPECIFIED)
     Route: 042
     Dates: start: 20071210, end: 20071210
  2. MULTIHANCE [Suspect]
     Indication: NUCLEAR MAGNETIC RESONANCE IMAGING BRAIN
     Dosage: 20ML ONCE INTRAVENOUS (NOT OTHERWISE SPECIFIED)
     Route: 042
     Dates: start: 20071210, end: 20071210
  3. PREDNISONE TAB [Concomitant]
  4. BENADRYL (DIMENHYDRINATE) [Concomitant]

REACTIONS (1)
  - ANAPHYLACTOID REACTION [None]
